FAERS Safety Report 6933208-1 (Version None)
Quarter: 2010Q3

REPORT INFORMATION
  Report Type: 
  Country: None (occurrence: None)
  Receive Date: 20100820
  Receipt Date: 20100809
  Transmission Date: 20110219
  Serious: Yes (Hospitalization)
  Sender: FDA-Public Use
  Company Number: IT-TEVA-244658ISR

PATIENT
  Age: 65 Year
  Sex: Male

DRUGS (2)
  1. LANSOPRAZOLE [Suspect]
  2. PANTOPRAZOLE [Suspect]

REACTIONS (1)
  - HYPOMAGNESAEMIA [None]
